FAERS Safety Report 11857779 (Version 1)
Quarter: 2015Q4

REPORT INFORMATION
  Report Type: Spontaneous
  Country: US (occurrence: None)
  Receive Date: 20151221
  Receipt Date: 20151221
  Transmission Date: 20160305
  Serious: Yes (Disabling)
  Sender: FDA-Public Use
  Company Number: None

PATIENT
  Age: 33 Year
  Sex: Female
  Weight: 68.04 kg

DRUGS (1)
  1. CIPRODEX [Suspect]
     Active Substance: CIPROFLOXACIN HYDROCHLORIDE\DEXAMETHASONE
     Indication: EAR INFECTION
     Dosage: 2 DROPS TWICE DAILY INTO THE EAR
     Dates: start: 20151204, end: 20151205

REACTIONS (3)
  - Hearing impaired [None]
  - Tinnitus [None]
  - Depression [None]

NARRATIVE: CASE EVENT DATE: 20151204
